FAERS Safety Report 15413928 (Version 3)
Quarter: 2018Q4

REPORT INFORMATION
  Report Type: Report from Study
  Country: US (occurrence: US)
  Receive Date: 20180921
  Receipt Date: 20181029
  Transmission Date: 20190204
  Serious: Yes (Hospitalization)
  Sender: FDA-Public Use
  Company Number: US-THERATECHNOLOGIES, INC.-TH-2018-00367

PATIENT

DRUGS (1)
  1. EGRIFTA [Suspect]
     Active Substance: TESAMORELIN
     Indication: NON-ALCOHOLIC STEATOHEPATITIS
     Dosage: 2 MG MILLIGRAM(S), DAILY DOSE
     Route: 058
     Dates: start: 20170913

REACTIONS (1)
  - Suicide attempt [Recovered/Resolved]

NARRATIVE: CASE EVENT DATE: 20180129
